FAERS Safety Report 7743313-8 (Version None)
Quarter: 2011Q3

REPORT INFORMATION
  Report Type: 
  Country: None (occurrence: None)
  Receive Date: 20110902
  Receipt Date: 20110829
  Transmission Date: 20111222
  Serious: Yes (Death)
  Sender: FDA-Public Use
  Company Number: DSA_46967_2011

PATIENT
  Sex: Male

DRUGS (1)
  1. XENAZINE [Suspect]
     Indication: HUNTINGTON'S DISEASE
     Dosage: (25 MG QD ORAL)
     Route: 048
     Dates: start: 20101230, end: 20110620

REACTIONS (2)
  - MULTI-ORGAN FAILURE [None]
  - MALNUTRITION [None]
